FAERS Safety Report 9271295 (Version 1)
Quarter: 2013Q2

REPORT INFORMATION
  Report Type: Spontaneous
  Country: US (occurrence: US)
  Receive Date: 20130506
  Receipt Date: 20130506
  Transmission Date: 20140414
  Serious: Yes (Other)
  Sender: FDA-Public Use
  Company Number: US-JNJFOC-20130414807

PATIENT
  Age: 63 Year
  Sex: Male
  Weight: 113.4 kg

DRUGS (20)
  1. SIMPONI [Suspect]
     Indication: RHEUMATOID ARTHRITIS
     Route: 058
     Dates: start: 20130414
  2. SIMPONI [Suspect]
     Indication: RHEUMATOID ARTHRITIS
     Route: 058
     Dates: start: 20130212
  3. LISINOPRIL [Concomitant]
     Indication: HYPERTENSION
     Route: 048
     Dates: start: 200509
  4. METOPROLOL TARTRATE [Concomitant]
     Indication: HYPERTENSION
     Dosage: STRENGTH: 50 MG
     Route: 048
     Dates: start: 200509
  5. PREDNISONE [Concomitant]
     Indication: ARTHRITIS
     Route: 048
     Dates: start: 201208
  6. OXYCONTIN [Concomitant]
     Indication: ARTHRALGIA
     Route: 048
     Dates: start: 201206
  7. OXYCONTIN [Concomitant]
     Indication: ARTHRALGIA
     Route: 048
     Dates: start: 201206
  8. ASPIRIN [Concomitant]
     Route: 048
     Dates: start: 2009
  9. CALCIUM [Concomitant]
     Indication: OSTEOPOROSIS
     Route: 048
     Dates: start: 201206
  10. FOLIC ACID [Concomitant]
     Indication: ARTHRITIS
     Route: 048
     Dates: start: 201208
  11. FUROSEMIDE [Concomitant]
     Indication: OEDEMA
     Dosage: STRENGTH: 40 MG
     Route: 048
     Dates: start: 2006
  12. HYDRALAZINE [Concomitant]
     Indication: HYPERTENSION
     Route: 048
     Dates: start: 2005
  13. METHOTREXATE [Concomitant]
     Indication: ARTHRITIS
     Dosage: STRNGTH: 2.5 MG
     Route: 048
     Dates: start: 201207
  14. PRILOSEC [Concomitant]
     Indication: GASTROOESOPHAGEAL REFLUX DISEASE
     Route: 048
     Dates: start: 201207
  15. VITAMIN D [Concomitant]
     Indication: NUTRITIONAL SUPPLEMENTATION
     Route: 048
     Dates: start: 201207
  16. BUPROPION [Concomitant]
     Indication: BIPOLAR DISORDER
     Dosage: STRENGTH: 150 MG
     Route: 048
     Dates: start: 2005
  17. CITALOPRAM [Concomitant]
     Indication: BIPOLAR DISORDER
     Route: 048
     Dates: start: 2005
  18. LAMOTRIGINE [Concomitant]
     Indication: BIPOLAR DISORDER
     Route: 048
     Dates: start: 2005
  19. LOXAPINE [Concomitant]
     Indication: SLEEP DISORDER
     Route: 048
     Dates: start: 201304
  20. LOXAPINE [Concomitant]
     Indication: DEPRESSION
     Route: 048
     Dates: start: 201304

REACTIONS (5)
  - Blood pressure fluctuation [Unknown]
  - Depression [Unknown]
  - Weight decreased [Not Recovered/Not Resolved]
  - Poor quality drug administered [Recovered/Resolved]
  - Middle insomnia [Unknown]
